FAERS Safety Report 8198204-8 (Version None)
Quarter: 2012Q1

REPORT INFORMATION
  Report Type: 
  Country: None (occurrence: None)
  Receive Date: 20120309
  Receipt Date: 20120229
  Transmission Date: 20120608
  Serious: Yes (Other)
  Sender: FDA-Public Use
  Company Number: PHHY2012IT018909

PATIENT
  Sex: Female

DRUGS (1)
  1. CLOZAPINE [Suspect]
     Indication: SCHIZOAFFECTIVE DISORDER
     Dosage: 25 MG, 1 TAB/DIE IN TWO DIVIDED  DOSES.
     Dates: start: 20111209, end: 20111210

REACTIONS (3)
  - APRAXIA [None]
  - OVERDOSE [None]
  - DYSARTHRIA [None]
